FAERS Safety Report 16017979 (Version 2)
Quarter: 2019Q1

REPORT INFORMATION
  Report Type: Report from Study
  Country: JP (occurrence: JP)
  Receive Date: 20190228
  Receipt Date: 20190327
  Transmission Date: 20190418
  Serious: Yes (Hospitalization, Other)
  Sender: FDA-Public Use
  Company Number: JP-INCYTE CORPORATION-2016IN004349

PATIENT

DRUGS (7)
  1. JAKAVI [Suspect]
     Active Substance: RUXOLITINIB
     Dosage: 15 MG, BID
     Route: 048
     Dates: start: 20150824, end: 20150906
  2. JAKAVI [Suspect]
     Active Substance: RUXOLITINIB
     Dosage: 15 MG, BID
     Route: 048
     Dates: start: 20150525, end: 20150621
  3. JAKAVI [Suspect]
     Active Substance: RUXOLITINIB
     Dosage: 12.5 MG, BID
     Route: 048
     Dates: start: 20150622, end: 20150823
  4. JAKAVI [Suspect]
     Active Substance: RUXOLITINIB
     Dosage: 17.5 MG, BID
     Route: 048
     Dates: start: 20150420, end: 20150524
  5. JAKAVI [Suspect]
     Active Substance: RUXOLITINIB
     Indication: MYELOFIBROSIS
     Dosage: 20 MG, BID
     Route: 048
     Dates: start: 20150314, end: 20150405
  6. JAKAVI [Suspect]
     Active Substance: RUXOLITINIB
     Dosage: 15 MG, BID
     Route: 048
     Dates: start: 20150406, end: 20150419
  7. JAKAVI [Suspect]
     Active Substance: RUXOLITINIB
     Dosage: 13.75 MG, BID
     Route: 048
     Dates: start: 20150907

REACTIONS (8)
  - Anaemia [Recovering/Resolving]
  - Blood pressure systolic increased [Unknown]
  - Lung neoplasm malignant [Recovered/Resolved]
  - Leukoplakia oral [Recovered/Resolved]
  - Liver disorder [Not Recovered/Not Resolved]
  - Second primary malignancy [Recovered/Resolved]
  - Renal disorder [Not Recovered/Not Resolved]
  - White blood cell count increased [Recovering/Resolving]

NARRATIVE: CASE EVENT DATE: 20150323
